FAERS Safety Report 4664930-8 (Version None)
Quarter: 2005Q2

REPORT INFORMATION
  Report Type: 
  Country: None (occurrence: None)
  Receive Date: 20050518
  Receipt Date: 20050513
  Transmission Date: 20051028
  Serious: Yes (Death)
  Sender: FDA-Public Use
  Company Number: 2005AP02826

PATIENT
  Age: 60 Year
  Sex: Male

DRUGS (1)
  1. IRESSA [Suspect]
     Indication: LUNG SQUAMOUS CELL CARCINOMA STAGE UNSPECIFIED
     Route: 048

REACTIONS (3)
  - ACUTE RESPIRATORY DISTRESS SYNDROME [None]
  - DIFFUSE ALVEOLAR DAMAGE [None]
  - METASTASIS [None]
